FAERS Safety Report 25556630 (Version 1)
Quarter: 2025Q3

REPORT INFORMATION
  Report Type: Other
  Country: US (occurrence: US)
  Receive Date: 20250715
  Receipt Date: 20250715
  Transmission Date: 20251021
  Serious: Yes (Death, Other)
  Sender: SECURA BIO
  Company Number: US-SECURA BIO, INC.-2022-SECUR-US000072

PATIENT

DRUGS (6)
  1. COPIKTRA [Suspect]
     Active Substance: DUVELISIB
     Indication: Oral cavity cancer metastatic
     Route: 065
  2. COPIKTRA [Suspect]
     Active Substance: DUVELISIB
     Indication: Metastases to lung
  3. COPIKTRA [Suspect]
     Active Substance: DUVELISIB
     Indication: Bone cancer metastatic
  4. DOCETAXEL [Suspect]
     Active Substance: DOCETAXEL
     Indication: Oral cavity cancer metastatic
     Route: 065
  5. DOCETAXEL [Suspect]
     Active Substance: DOCETAXEL
     Indication: Bone cancer metastatic
  6. DOCETAXEL [Suspect]
     Active Substance: DOCETAXEL
     Indication: Metastases to lung

REACTIONS (7)
  - Disease progression [Fatal]
  - Pulmonary thrombosis [Fatal]
  - Abdominal distension [Fatal]
  - General physical health deterioration [Fatal]
  - Vomiting [Fatal]
  - Pulmonary haemorrhage [Fatal]
  - Product use in unapproved indication [Unknown]

NARRATIVE: CASE EVENT DATE: 20220323
